FAERS Safety Report 14036044 (Version 1)
Quarter: 2017Q4

REPORT INFORMATION
  Report Type: Spontaneous
  Country: US (occurrence: US)
  Receive Date: 20171003
  Receipt Date: 20171003
  Transmission Date: 20180321
  Serious: No
  Sender: FDA-Public Use
  Company Number: US-ROCHE-1831678

PATIENT
  Age: 68 Year
  Sex: Female
  Weight: 63.56 kg

DRUGS (11)
  1. COUMADIN [Concomitant]
     Active Substance: WARFARIN SODIUM
  2. NORVASC [Concomitant]
     Active Substance: AMLODIPINE BESYLATE
  3. LEVOTHYROXINE SODIUM. [Concomitant]
     Active Substance: LEVOTHYROXINE SODIUM
  4. ZELBORAF [Suspect]
     Active Substance: VEMURAFENIB
     Indication: PRODUCT USED FOR UNKNOWN INDICATION
     Dosage: TAKE 4 CAPSULES PO BID
     Route: 048
     Dates: start: 201608
  5. METHYLPREDNISOLONE. [Concomitant]
     Active Substance: METHYLPREDNISOLONE
  6. LEVOXYL [Concomitant]
     Active Substance: LEVOTHYROXINE SODIUM
  7. GABAPENTIN. [Concomitant]
     Active Substance: GABAPENTIN
  8. SERTRALINE HCL [Concomitant]
     Active Substance: SERTRALINE HYDROCHLORIDE
  9. AMLODIPINE BESYLATE. [Concomitant]
     Active Substance: AMLODIPINE BESYLATE
  10. ERLOTINIB [Concomitant]
     Active Substance: ERLOTINIB
  11. WARFARIN SODIUM. [Concomitant]
     Active Substance: WARFARIN SODIUM

REACTIONS (2)
  - Rash [Recovering/Resolving]
  - Skin discolouration [Recovered/Resolved]

NARRATIVE: CASE EVENT DATE: 201609
